FAERS Safety Report 9618577 (Version 1)
Quarter: 2013Q4

REPORT INFORMATION
  Report Type: Spontaneous
  Country: US (occurrence: US)
  Receive Date: 20131014
  Receipt Date: 20131014
  Transmission Date: 20140711
  Serious: No
  Sender: FDA-Public Use
  Company Number: US-PFIZER INC-2013289034

PATIENT
  Sex: Male

DRUGS (2)
  1. TIKOSYN [Suspect]
     Dosage: UNK
  2. CYCLOBENZAPRINE [Suspect]
     Indication: FACIAL PAIN
     Dosage: 10 MG, UNK
     Dates: start: 2013

REACTIONS (4)
  - Plastic surgery [Unknown]
  - Facial pain [Unknown]
  - Arthropathy [Unknown]
  - Rash [Unknown]
